FAERS Safety Report 14729829 (Version 3)
Quarter: 2019Q2

REPORT INFORMATION
  Report Type: Spontaneous
  Country: US (occurrence: US)
  Receive Date: 20180406
  Receipt Date: 20190604
  Transmission Date: 20190711
  Serious: Yes (Hospitalization)
  Sender: FDA-Public Use
  Company Number: US-ACTELION-A-NJ2018-169958

PATIENT
  Age: 72 Year
  Sex: Female

DRUGS (2)
  1. TADALAFIL. [Concomitant]
     Active Substance: TADALAFIL
  2. OPSUMIT [Suspect]
     Active Substance: MACITENTAN
     Indication: PULMONARY HYPERTENSION
     Dosage: UNK
     Route: 048
     Dates: start: 20171228, end: 20190316

REACTIONS (13)
  - Dyspnoea [Recovered/Resolved with Sequelae]
  - Physical deconditioning [Unknown]
  - Malaise [Unknown]
  - Hypotension [Unknown]
  - Cardiac failure congestive [Recovered/Resolved]
  - Fatigue [Unknown]
  - Cough [Unknown]
  - Atrial tachycardia [Recovered/Resolved]
  - Chest pain [Unknown]
  - Anaemia [Recovered/Resolved]
  - Supraventricular tachycardia [Unknown]
  - Unevaluable event [Unknown]
  - Pulmonary arterial wedge pressure increased [Unknown]

NARRATIVE: CASE EVENT DATE: 20180501
